FAERS Safety Report 12678265 (Version 1)
Quarter: 2016Q3

REPORT INFORMATION
  Report Type: Spontaneous
  Country: US (occurrence: US)
  Receive Date: 20160823
  Receipt Date: 20160823
  Transmission Date: 20161109
  Serious: Yes (Death)
  Sender: FDA-Public Use
  Company Number: US-UNITED THERAPEUTICS-UNT-2016-013161

PATIENT
  Age: 62 Year
  Sex: Male
  Weight: 115.96 kg

DRUGS (1)
  1. REMODULIN [Suspect]
     Active Substance: TREPROSTINIL
     Indication: PULMONARY HYPERTENSION
     Dosage: 0.0095 ?G/KG, CONTINUING
     Route: 041
     Dates: start: 20160804

REACTIONS (1)
  - Death [Fatal]

NARRATIVE: CASE EVENT DATE: 20160815
